FAERS Safety Report 24163804 (Version 1)
Quarter: 2024Q3

REPORT INFORMATION
  Report Type: Spontaneous
  Country: ZA (occurrence: None)
  Receive Date: 20240801
  Receipt Date: 20240801
  Transmission Date: 20241016
  Serious: Yes (Other)
  Sender: ASTRAZENECA
  Company Number: 2024A168851

PATIENT
  Sex: Female

DRUGS (5)
  1. DAPAGLIFLOZIN PROPANEDIOL [Suspect]
     Active Substance: DAPAGLIFLOZIN PROPANEDIOL
     Indication: Type 2 diabetes mellitus
     Dosage: 10.0MG UNKNOWN
     Route: 048
  2. OMIFLUX [Concomitant]
     Indication: Gastrooesophageal reflux disease
     Dosage: 20.0MG UNKNOWN
  3. LORATADINE [Concomitant]
     Active Substance: LORATADINE
     Indication: Hypersensitivity
     Dosage: 19.0MG UNKNOWN
  4. CARVEDILOL [Concomitant]
     Active Substance: CARVEDILOL
     Indication: Hypertension
     Dosage: 6.0MG UNKNOWN
  5. ZOLNOREM MR [Concomitant]
     Indication: Sleep disorder
     Dosage: 12.0MG UNKNOWN

REACTIONS (1)
  - Deafness [Unknown]
